FAERS Safety Report 16312502 (Version 2)
Quarter: 2019Q3

REPORT INFORMATION
  Report Type: Spontaneous
  Country: US (occurrence: US)
  Receive Date: 20190515
  Receipt Date: 20190702
  Transmission Date: 20191004
  Serious: Yes (Other)
  Sender: FDA-Public Use
  Company Number: US-SA-2019SA131665

PATIENT
  Age: 35 Year
  Sex: Female

DRUGS (4)
  1. NICODERM CQ [Suspect]
     Active Substance: NICOTINE
     Indication: SMOKING CESSATION THERAPY
     Dosage: 14 MG
     Dates: start: 201904
  2. NICODERM CQ [Suspect]
     Active Substance: NICOTINE
     Dosage: 7 MG
     Dates: start: 201904
  3. NICODERM CQ [Suspect]
     Active Substance: NICOTINE
     Dosage: 14 MG
     Dates: start: 201904
  4. NICODERM CQ [Suspect]
     Active Substance: NICOTINE
     Indication: SMOKING CESSATION THERAPY
     Dosage: 7 MG
     Dates: start: 201904

REACTIONS (5)
  - Loss of consciousness [Unknown]
  - Headache [Unknown]
  - Product complaint [Unknown]
  - Dizziness [Unknown]
  - Wrong technique in product usage process [Unknown]
